FAERS Safety Report 5828081-9 (Version None)
Quarter: 2008Q3

REPORT INFORMATION
  Report Type: 
  Country: None (occurrence: None)
  Receive Date: 20080730
  Receipt Date: 20070912
  Transmission Date: 20090109
  Serious: No
  Sender: FDA-Public Use
  Company Number: A0681467A

PATIENT
  Age: 7 Month
  Sex: Female

DRUGS (1)
  1. ZANTAC [Suspect]
     Indication: DRUG USE FOR UNKNOWN INDICATION
     Dosage: 1.2ML TWICE PER DAY
     Route: 048
     Dates: start: 20070911

REACTIONS (1)
  - VOMITING [None]
